FAERS Safety Report 18181668 (Version 1)
Quarter: 2020Q3

REPORT INFORMATION
  Report Type: Spontaneous
  Country: US (occurrence: US)
  Receive Date: 20200821
  Receipt Date: 20200821
  Transmission Date: 20201103
  Serious: No
  Sender: FDA-Public Use
  Company Number: US-ASTRAZENECA-2020SE86734

PATIENT
  Age: 934 Month
  Sex: Female

DRUGS (2)
  1. BYDUREON [Suspect]
     Active Substance: EXENATIDE
     Route: 058
     Dates: start: 202002
  2. PLAVIX [Concomitant]
     Active Substance: CLOPIDOGREL BISULFATE
     Indication: STENT REMOVAL

REACTIONS (4)
  - Device leakage [Unknown]
  - Device use issue [Unknown]
  - Product packaging quantity issue [Unknown]
  - Injection site haemorrhage [Unknown]

NARRATIVE: CASE EVENT DATE: 202002
